FAERS Safety Report 13484709 (Version 4)
Quarter: 2017Q2

REPORT INFORMATION
  Report Type: Report from Study
  Country: CA (occurrence: CA)
  Receive Date: 20170426
  Receipt Date: 20170607
  Transmission Date: 20170830
  Serious: Yes (Hospitalization, Other)
  Sender: FDA-Public Use
  Company Number: PHHY2016CA168642

PATIENT
  Age: 6 Year
  Sex: Male

DRUGS (9)
  1. ILARIS [Suspect]
     Active Substance: CANAKINUMAB
     Indication: CRYOPYRIN ASSOCIATED PERIODIC SYNDROME
     Dosage: 50 MG, 6 WEEKS
     Route: 058
     Dates: start: 20160812
  2. ILARIS [Suspect]
     Active Substance: CANAKINUMAB
     Dosage: UNK
     Route: 058
     Dates: start: 20170417
  3. ILARIS [Suspect]
     Active Substance: CANAKINUMAB
     Dosage: UNK
     Route: 058
     Dates: start: 20170309
  4. ILARIS [Suspect]
     Active Substance: CANAKINUMAB
     Dosage: UNK
     Route: 058
     Dates: start: 20161214
  5. ILARIS [Suspect]
     Active Substance: CANAKINUMAB
     Dosage: UNK
     Route: 058
     Dates: start: 20170601
  6. ILARIS [Suspect]
     Active Substance: CANAKINUMAB
     Dosage: 50 MG, 6 WEEKS
     Route: 058
     Dates: start: 20170126
  7. ILARIS [Suspect]
     Active Substance: CANAKINUMAB
     Dosage: 45 MG, 8 WEEKS
     Route: 058
  8. ILARIS [Suspect]
     Active Substance: CANAKINUMAB
     Dosage: UNK
     Route: 058
     Dates: start: 20170420
  9. ILARIS [Suspect]
     Active Substance: CANAKINUMAB
     Dosage: UNK, 6 WEEKS
     Route: 058
     Dates: start: 201701

REACTIONS (11)
  - Pharyngitis [Unknown]
  - Blood pressure decreased [Unknown]
  - Nephrolithiasis [Unknown]
  - Vomiting [Unknown]
  - Red blood cell sedimentation rate increased [Unknown]
  - Acne [Unknown]
  - Gastroenteritis [Unknown]
  - Weight increased [Unknown]
  - Fatigue [Unknown]
  - Diarrhoea [Unknown]
  - Pain in extremity [Unknown]

NARRATIVE: CASE EVENT DATE: 2016
